FAERS Safety Report 14101583 (Version 2)
Quarter: 2017Q4

REPORT INFORMATION
  Report Type: Spontaneous
  Country: US (occurrence: US)
  Receive Date: 20171018
  Receipt Date: 20171025
  Transmission Date: 20180321
  Serious: No
  Sender: FDA-Public Use
  Company Number: US-PFIZER INC-2017442996

PATIENT
  Sex: Female

DRUGS (2)
  1. AMOXIL [Concomitant]
     Active Substance: AMOXICILLIN
     Dosage: 7 ML, 2X/DAY FOR TEN DAYS
  2. CHILDRENS ADVIL [Suspect]
     Active Substance: IBUPROFEN
     Indication: PYREXIA
     Dosage: UNK
     Dates: start: 20170728, end: 20170728

REACTIONS (3)
  - Dermatitis allergic [Unknown]
  - Swelling face [Unknown]
  - Rash erythematous [Unknown]

NARRATIVE: CASE EVENT DATE: 20170728
